FAERS Safety Report 5514506-5 (Version None)
Quarter: 2007Q4

REPORT INFORMATION
  Report Type: 
  Country: None (occurrence: None)
  Receive Date: 20071113
  Receipt Date: 20071102
  Transmission Date: 20080405
  Serious: Yes (Life-Threatening)
  Sender: FDA-Public Use
  Company Number: B0493761A

PATIENT
  Age: 62 Year
  Sex: Female
  Weight: 72 kg

DRUGS (3)
  1. GAVISCON [Suspect]
  2. CAPECITABINE [Suspect]
  3. BEVACIZUMAB [Suspect]

REACTIONS (1)
  - CARDIOSPASM [None]
